FAERS Safety Report 7719803-0 (Version None)
Quarter: 2011Q3

REPORT INFORMATION
  Report Type: 
  Country: None (occurrence: None)
  Receive Date: 20110831
  Receipt Date: 20110824
  Transmission Date: 20111222
  Serious: No
  Sender: FDA-Public Use
  Company Number: US-BIOGENIDEC-2011BI009136

PATIENT
  Sex: Male

DRUGS (1)
  1. TYSABRI [Suspect]
     Indication: MULTIPLE SCLEROSIS
     Route: 042
     Dates: start: 20100331

REACTIONS (15)
  - HEADACHE [None]
  - VOMITING [None]
  - MEMORY IMPAIRMENT [None]
  - PARAESTHESIA [None]
  - VISUAL IMPAIRMENT [None]
  - BLINDNESS [None]
  - DIZZINESS [None]
  - PAIN [None]
  - TRISMUS [None]
  - COORDINATION ABNORMAL [None]
  - FATIGUE [None]
  - GAIT DISTURBANCE [None]
  - ASTHENIA [None]
  - MOBILITY DECREASED [None]
  - HEMIPARESIS [None]
